FAERS Safety Report 6104284-3 (Version None)
Quarter: 2009Q1

REPORT INFORMATION
  Report Type: 
  Country: None (occurrence: None)
  Receive Date: 20090305
  Receipt Date: 20090302
  Transmission Date: 20090719
  Serious: Yes (Death)
  Sender: FDA-Public Use
  Company Number: US-GILEAD-2009-0020620

PATIENT
  Sex: Female
  Weight: 67.192 kg

DRUGS (3)
  1. LETAIRIS [Suspect]
     Indication: PULMONARY ARTERIAL HYPERTENSION
     Route: 048
     Dates: start: 20071211
  2. DILTIAZEM [Concomitant]
  3. SYNTHROID [Concomitant]

REACTIONS (1)
  - DEATH [None]
